FAERS Safety Report 17598029 (Version 4)
Quarter: 2020Q2

REPORT INFORMATION
  Report Type: Spontaneous
  Country: US (occurrence: US)
  Receive Date: 20200330
  Receipt Date: 20200408
  Transmission Date: 20200713
  Serious: Yes (Other)
  Sender: FDA-Public Use
  Company Number: US-PFIZER INC-2020127657

PATIENT
  Age: 88 Year
  Sex: Female
  Weight: 48.8 kg

DRUGS (2)
  1. TOVIAZ [Suspect]
     Active Substance: FESOTERODINE FUMARATE
     Indication: HYPERTONIC BLADDER
     Dosage: 8 MG, ONCE A DAY
     Route: 048
     Dates: start: 2018
  2. HUMALOG [Concomitant]
     Active Substance: INSULIN LISPRO
     Indication: DIABETES MELLITUS
     Dosage: 200 UNITS, INJECTION, 3X/DAY

REACTIONS (4)
  - Blindness [Unknown]
  - Cystitis [Not Recovered/Not Resolved]
  - Malaise [Unknown]
  - Kidney infection [Unknown]
